FAERS Safety Report 8863306 (Version 2)
Quarter: 2013Q2

REPORT INFORMATION
  Report Type: Spontaneous
  Country: US (occurrence: US)
  Receive Date: 20121025
  Receipt Date: 20130517
  Transmission Date: 20140414
  Serious: Yes (Other)
  Sender: FDA-Public Use
  Company Number: US-ROCHE-791090

PATIENT
  Age: 60 Year
  Sex: Male
  Weight: 99.88 kg

DRUGS (3)
  1. ACCUTANE [Suspect]
     Indication: ACNE
     Route: 065
     Dates: start: 199206, end: 199211
  2. ACCUTANE [Suspect]
     Route: 065
     Dates: start: 199909, end: 200001
  3. TETRACYCLIN [Concomitant]

REACTIONS (6)
  - Inflammatory bowel disease [Unknown]
  - Crohn^s disease [Unknown]
  - Stress [Unknown]
  - Intestinal obstruction [Unknown]
  - Ileal stenosis [Unknown]
  - Intestinal fistula [Unknown]
